FAERS Safety Report 21757789 (Version 1)
Quarter: 2022Q4

REPORT INFORMATION
  Report Type: Spontaneous
  Country: US (occurrence: None)
  Receive Date: 20221221
  Receipt Date: 20221221
  Transmission Date: 20230113
  Serious: Yes (Life-Threatening, Hospitalization)
  Sender: FDA-Public Use
  Company Number: US-ROCHE-2849103

PATIENT
  Age: 62 Year
  Sex: Male
  Weight: 97 kg

DRUGS (2)
  1. ACTIVASE [Suspect]
     Active Substance: ALTEPLASE
     Indication: Cerebrovascular accident
     Route: 041
     Dates: start: 20210519, end: 20210519
  2. ACTIVASE [Suspect]
     Active Substance: ALTEPLASE
     Indication: Ischaemic stroke

REACTIONS (3)
  - Haemorrhage intracranial [Unknown]
  - Incorrect dose administered [Unknown]
  - Vomiting [Unknown]

NARRATIVE: CASE EVENT DATE: 20210519
